FAERS Safety Report 7039887-5 (Version None)
Quarter: 2010Q4

REPORT INFORMATION
  Report Type: 
  Country: None (occurrence: None)
  Receive Date: 20101012
  Receipt Date: 20101004
  Transmission Date: 20110411
  Serious: Yes (Other)
  Sender: FDA-Public Use
  Company Number: US-PFIZER INC-2010126410

PATIENT
  Sex: Female
  Weight: 70.2 kg

DRUGS (3)
  1. LIPITOR [Suspect]
     Indication: MYOCARDIAL INFARCTION
     Dosage: 80 MG, 1X/DAY
     Route: 048
     Dates: start: 20100829, end: 20101001
  2. PLAVIX [Concomitant]
     Dosage: UNK
  3. ACETYLSALICYLIC ACID [Concomitant]
     Dosage: UNK

REACTIONS (8)
  - BALANCE DISORDER [None]
  - HUNGER [None]
  - HYPOKINESIA [None]
  - MUSCLE DISORDER [None]
  - MUSCLE TIGHTNESS [None]
  - NAUSEA [None]
  - PAIN [None]
  - TRAUMATIC BRAIN INJURY [None]
